FAERS Safety Report 6267081-4 (Version None)
Quarter: 2009Q3

REPORT INFORMATION
  Report Type: 
  Country: None (occurrence: None)
  Receive Date: 20090714
  Receipt Date: 20090705
  Transmission Date: 20100115
  Serious: Yes (Life-Threatening, Hospitalization)
  Sender: FDA-Public Use
  Company Number: ES-BRISTOL-MYERS SQUIBB COMPANY-14675102

PATIENT
  Sex: Female

DRUGS (2)
  1. ERBITUX [Suspect]
     Indication: BREAST CANCER METASTATIC
     Route: 042
     Dates: start: 20090618, end: 20090618
  2. CHEMOTHERAPY [Suspect]
     Indication: BREAST CANCER METASTATIC

REACTIONS (1)
  - CEREBRAL HAEMORRHAGE [None]
